FAERS Safety Report 16889801 (Version 3)
Quarter: 2019Q4

REPORT INFORMATION
  Report Type: Spontaneous
  Country: GB (occurrence: GB)
  Receive Date: 20191007
  Receipt Date: 20191129
  Transmission Date: 20200122
  Serious: Yes (Other)
  Sender: FDA-Public Use
  Company Number: GB-AUROBINDO-AUR-APL-2019-054415

PATIENT
  Age: 75 Year
  Sex: Female

DRUGS (3)
  1. HALOPERIDOL. [Suspect]
     Active Substance: HALOPERIDOL
     Indication: SEDATION
     Dosage: SMALL DOSES
     Route: 065
  2. METHYLPREDNISOLONE ACEPONATE [Concomitant]
     Active Substance: METHYLPREDNISOLONE ACEPONATE
     Indication: ENCEPHALITIS AUTOIMMUNE
     Dosage: UNK
     Route: 042
  3. RISPERIDONE. [Suspect]
     Active Substance: RISPERIDONE
     Indication: SEDATION
     Dosage: SMALL DOSES
     Route: 065

REACTIONS (6)
  - Drug hypersensitivity [Unknown]
  - Drug intolerance [Unknown]
  - Extrapyramidal disorder [Recovering/Resolving]
  - Bradykinesia [Unknown]
  - Hypersensitivity [Unknown]
  - Cogwheel rigidity [Unknown]
